FAERS Safety Report 8314072-5 (Version None)
Quarter: 2012Q2

REPORT INFORMATION
  Report Type: 
  Country: None (occurrence: None)
  Receive Date: 20120426
  Receipt Date: 20120412
  Transmission Date: 20120825
  Serious: Yes (Hospitalization, Disabling)
  Sender: FDA-Public Use
  Company Number: GB-RANBAXY-2012R1-55613

PATIENT
  Age: 39 Year
  Sex: Female
  Weight: 54 kg

DRUGS (2)
  1. CITALOPRAM HYDROBROMIDE [Concomitant]
     Indication: DEPRESSION
     Dosage: UNK
     Route: 065
     Dates: start: 20111102, end: 20120131
  2. SERTRALINE HYDROCHLORIDE [Suspect]
     Indication: PRODUCT USED FOR UNKNOWN INDICATION
     Dosage: UNK
     Route: 065
     Dates: start: 20120131

REACTIONS (2)
  - CONVULSION [None]
  - LOSS OF CONSCIOUSNESS [None]
